FAERS Safety Report 8848927 (Version 3)
Quarter: 2013Q4

REPORT INFORMATION
  Report Type: Spontaneous
  Country: US (occurrence: US)
  Receive Date: 20121018
  Receipt Date: 20131217
  Transmission Date: 20140711
  Serious: Yes (Hospitalization, Other)
  Sender: FDA-Public Use
  Company Number: US-BAYER-2012-108218

PATIENT
  Age: 28 Year
  Sex: Female

DRUGS (8)
  1. YAZ [Suspect]
     Dosage: UNK
     Dates: start: 200805, end: 201006
  2. OXYCODONE/APAP [Concomitant]
     Dosage: 5/325MG
     Route: 048
     Dates: start: 20091224
  3. PROMETHAZINE [Concomitant]
     Dosage: 25 MG, UNK
     Route: 048
     Dates: start: 20091224
  4. OMEPRAZOLE [Concomitant]
     Dosage: 20 MG, 1 DAILY
     Route: 048
  5. ROCEPHIN [Concomitant]
     Dosage: 4 G, UNK
     Route: 033
  6. ZOFRAN [Concomitant]
     Dosage: 4 MG, UNK
     Route: 033
  7. PRILOSEC [Concomitant]
  8. PREVACID [Concomitant]
     Dosage: 15 MG, BID
     Route: 048

REACTIONS (5)
  - Cholecystitis chronic [None]
  - Abdominal pain [None]
  - Gallbladder injury [None]
  - Injury [None]
  - Pain [None]
